FAERS Safety Report 8772495 (Version 3)
Quarter: 2013Q2

REPORT INFORMATION
  Report Type: Spontaneous
  Country: US (occurrence: US)
  Receive Date: 20120905
  Receipt Date: 20130531
  Transmission Date: 20140414
  Serious: Yes (Other)
  Sender: FDA-Public Use
  Company Number: US-BAYER-2012-090776

PATIENT
  Age: 29 Year
  Sex: Female
  Weight: 112.47 kg

DRUGS (2)
  1. MIRENA [Suspect]
     Indication: CONTRACEPTION
     Dosage: 20 ?G, CONT
     Route: 015
     Dates: start: 20090701, end: 20120731
  2. MIRENA [Suspect]
     Indication: MENORRHAGIA

REACTIONS (6)
  - Device dislocation [None]
  - Complication of device removal [Not Recovered/Not Resolved]
  - Device breakage [Not Recovered/Not Resolved]
  - Pregnancy with contraceptive device [None]
  - Drug ineffective [None]
  - Gestational diabetes [None]
